FAERS Safety Report 5239876-7 (Version None)
Quarter: 2007Q1

REPORT INFORMATION
  Report Type: 
  Country: None (occurrence: None)
  Receive Date: 20070216
  Receipt Date: 20070208
  Transmission Date: 20070707
  Serious: Yes (Death, Other)
  Sender: FDA-Public Use
  Company Number: JP-ABBOTT-07P-087-0358801-00

PATIENT
  Age: 48 Year
  Sex: Female

DRUGS (14)
  1. KALETRA [Suspect]
     Indication: HIV INFECTION
     Route: 048
     Dates: start: 20060111, end: 20060209
  2. LAMIVUDINE [Concomitant]
     Indication: HIV INFECTION
     Route: 048
     Dates: start: 20060111, end: 20060209
  3. STAVUDINE [Concomitant]
     Indication: HIV INFECTION
     Route: 048
     Dates: start: 20060111, end: 20060209
  4. GANCICLONAVIR [Concomitant]
     Indication: CYTOMEGALOVIRUS INFECTION
     Route: 048
     Dates: start: 20051126, end: 20051208
  5. FOSCARNET SODIUM HYDRATE [Concomitant]
     Indication: CYTOMEGALOVIRUS INFECTION
     Route: 042
     Dates: start: 20060202, end: 20060403
  6. FOSCARNET SODIUM HYDRATE [Concomitant]
     Route: 042
     Dates: start: 20051209, end: 20051228
  7. FOSCARNET SODIUM HYDRATE [Concomitant]
     Route: 042
     Dates: start: 20051227, end: 20060201
  8. VALPROATE SODIUM [Concomitant]
     Indication: CONVULSION PROPHYLAXIS
     Route: 048
     Dates: start: 20051126, end: 20060101
  9. ISONIAZID [Concomitant]
     Indication: MENINGITIS TUBERCULOUS
     Route: 048
     Dates: start: 20051125, end: 20060101
  10. RIFAMPICIN [Concomitant]
     Indication: MENINGITIS TUBERCULOUS
     Route: 048
     Dates: start: 20051125, end: 20060101
  11. ETHAMBUTOL HCL [Concomitant]
     Indication: MENINGITIS TUBERCULOUS
     Route: 048
     Dates: start: 20051125, end: 20060101
  12. PYROXIDAL [Concomitant]
     Indication: MENINGITIS TUBERCULOUS
     Route: 048
     Dates: start: 20051125, end: 20060120
  13. PYRAZINAMIDE [Concomitant]
     Indication: MENINGITIS TUBERCULOUS
     Route: 048
     Dates: start: 20051125, end: 20060331
  14. FLUCONAZOLE [Concomitant]
     Indication: OESOPHAGEAL CANDIDIASIS
     Route: 048
     Dates: start: 20051207, end: 20051221

REACTIONS (5)
  - CYTOMEGALOVIRUS CHORIORETINITIS [None]
  - ENCEPHALITIS CYTOMEGALOVIRUS [None]
  - GENERAL PHYSICAL HEALTH DETERIORATION [None]
  - ORAL INTAKE REDUCED [None]
  - UNRESPONSIVE TO STIMULI [None]
